FAERS Safety Report 13995570 (Version 1)
Quarter: 2017Q3

REPORT INFORMATION
  Report Type: Spontaneous
  Country: US (occurrence: US)
  Receive Date: 20170921
  Receipt Date: 20170921
  Transmission Date: 20171128
  Serious: No
  Sender: FDA-Public Use
  Company Number: US-PFIZER INC-2016402615

PATIENT
  Age: 91 Year
  Sex: Female
  Weight: 81.91 kg

DRUGS (13)
  1. HYDROCHLOROTHIAZIDE. [Concomitant]
     Active Substance: HYDROCHLOROTHIAZIDE
     Dosage: 25 MG, ONCE A DAY
     Route: 048
  2. IBRANCE [Suspect]
     Active Substance: PALBOCICLIB
     Indication: BREAST CANCER FEMALE
     Dosage: 125 MG ,CYCLIC (DAILY FOR 21 DAYS FOLLOWED BY A 7 DAY REST PERIOD)
     Dates: start: 20160830
  3. ZOMETA [Concomitant]
     Active Substance: ZOLEDRONIC ACID
     Indication: PLASMA CELL MYELOMA
  4. VITAMIN B COMPLEX [Concomitant]
     Active Substance: CYANOCOBALAMIN\DEXPANTHENOL\NIACINAMIDE\PYRIDOXINE HYDROCHLORIDE\RIBOFLAVIN 5^-PHOSPHATE SODIUM\THIAMINE HYDROCHLORIDE\VITAMIN B COMPLEX
     Dosage: UNK
     Route: 048
  5. LISINOPRIL. [Concomitant]
     Active Substance: LISINOPRIL
     Dosage: 20 MG, ONCE A DAY
     Route: 048
  6. IRON [Concomitant]
     Active Substance: IRON
     Dosage: 325 MG, ONCE A DAY
     Route: 048
  7. ZOMETA [Concomitant]
     Active Substance: ZOLEDRONIC ACID
     Indication: METASTATIC NEOPLASM
     Dosage: UNK, CYCLIC
     Dates: start: 20150716
  8. ASPIR 81 [Concomitant]
     Dosage: 81 MG, ONCE A DAY
     Route: 048
  9. TOPROL XL [Concomitant]
     Active Substance: METOPROLOL SUCCINATE
     Dosage: 25 MG, ONCE A DAY
     Route: 048
  10. LETROZOLE. [Concomitant]
     Active Substance: LETROZOLE
     Dosage: 2.5 MG, ONCE A DAY
     Route: 048
  11. CLONIDINE HCL [Concomitant]
     Active Substance: CLONIDINE HYDROCHLORIDE
     Dosage: 0.1 MG, THREE TIMES A DAY
     Route: 048
  12. OMEPRAZOLE. [Concomitant]
     Active Substance: OMEPRAZOLE
     Dosage: 40 MG, ONCE A DAY
     Route: 048
  13. FASLODEX [Concomitant]
     Active Substance: FULVESTRANT
     Indication: BREAST CANCER FEMALE
     Dosage: 500 MG, CYCLIC
     Route: 030
     Dates: start: 20160809

REACTIONS (2)
  - Blood creatinine increased [Unknown]
  - Nausea [Unknown]
